FAERS Safety Report 8884636 (Version 1)
Quarter: 2012Q4

REPORT INFORMATION
  Report Type: 
  Country: CA (occurrence: CA)
  Receive Date: 20121104
  Receipt Date: 20121104
  Transmission Date: 20130627
  Serious: Yes (Other)
  Sender: FDA-Public Use
  Company Number: PHHO2005CA02149

PATIENT
  Sex: Female

DRUGS (1)
  1. SANDOSTATIN LAR (PATIENT BASIS) [Suspect]
     Dosage: 40 mg, QMO
     Dates: start: 20040902

REACTIONS (5)
  - Pyrexia [Recovered/Resolved]
  - Diarrhoea [Recovered/Resolved]
  - Asthenia [Recovered/Resolved]
  - Fatigue [Recovered/Resolved]
  - Flushing [Unknown]
